FAERS Safety Report 7394353-2 (Version None)
Quarter: 2011Q2

REPORT INFORMATION
  Report Type: 
  Country: None (occurrence: None)
  Receive Date: 20110405
  Receipt Date: 20110328
  Transmission Date: 20111010
  Serious: Yes (Hospitalization)
  Sender: FDA-Public Use
  Company Number: CN-B.I. PHARMACEUTICALS,INC./RIDGEFIELD-2011-CS-00230CS

PATIENT
  Sex: Male
  Weight: 62 kg

DRUGS (5)
  1. PRAMIPEXOLE DIHYDROCHLORIDE [Suspect]
     Dosage: 0.75 MG
     Route: 048
     Dates: start: 20101125, end: 20110325
  2. OXYCODONE/ACETAMINOPHEN [Concomitant]
     Indication: SCIATICA
     Dosage: 5MG/325MG PRN
     Route: 048
     Dates: start: 20101103, end: 20101119
  3. TIMISARTAN [Concomitant]
     Indication: HYPERTENSION
     Dosage: 80 MG
     Route: 048
     Dates: start: 20080101, end: 20101229
  4. IRBESARTAN AND HYDROCHLOROTHIAZIDE [Concomitant]
     Indication: HYPERTENSION
     Dosage: 150MG/12.5MG
     Route: 048
     Dates: start: 20101229, end: 20110216
  5. PRAMIPEXOLE DIHYDROCHLORIDE [Suspect]
     Indication: PARKINSON'S DISEASE
     Dosage: 0.375 MG
     Route: 048
     Dates: start: 20101119, end: 20101125

REACTIONS (2)
  - LIP INJURY [None]
  - ORTHOSTATIC HYPOTENSION [None]
